FAERS Safety Report 10484946 (Version 2)
Quarter: 2014Q3

REPORT INFORMATION
  Report Type: Report from Study
  Country: US (occurrence: US)
  Receive Date: 20140930
  Receipt Date: 20140930
  Transmission Date: 20150326
  Serious: Yes (Death, Hospitalization, Other)
  Sender: FDA-Public Use
  Company Number: US-TEVA-502668USA

PATIENT
  Sex: Male

DRUGS (1)
  1. CLOZAPINE. [Suspect]
     Active Substance: CLOZAPINE
     Route: 048

REACTIONS (7)
  - Mental status changes [Unknown]
  - Cerebrovascular accident [Unknown]
  - Craniocerebral injury [Unknown]
  - Mental disorder [Fatal]
  - Delirium [Unknown]
  - Death [Fatal]
  - Fall [Unknown]
